FAERS Safety Report 9666369 (Version 2)
Quarter: 2014Q2

REPORT INFORMATION
  Report Type: Spontaneous
  Country: US (occurrence: US)
  Receive Date: 20131104
  Receipt Date: 20140616
  Transmission Date: 20141212
  Serious: No
  Sender: FDA-Public Use
  Company Number: US-BIOGENIDEC-2013BI085695

PATIENT
  Age: 41 Year
  Sex: Female

DRUGS (9)
  1. TECFIDERA [Suspect]
     Indication: MULTIPLE SCLEROSIS
     Route: 048
     Dates: start: 20130709, end: 20130821
  2. TECFIDERA [Suspect]
     Indication: MULTIPLE SCLEROSIS
     Route: 048
     Dates: start: 20140306, end: 20140513
  3. TECFIDERA [Suspect]
     Indication: MULTIPLE SCLEROSIS
     Route: 048
     Dates: start: 20140306, end: 20140513
  4. FLEXERIL [Concomitant]
     Route: 048
  5. MODAFINIL [Concomitant]
     Route: 048
  6. HYDROCHLOROTHIAZIDE [Concomitant]
     Route: 048
  7. TOPIRAMATE [Concomitant]
     Route: 048
  8. SERTRALINE [Concomitant]
     Route: 048
  9. TOPROL XL [Concomitant]
     Route: 048

REACTIONS (6)
  - Urticaria [Unknown]
  - Prescribed underdose [Recovered/Resolved]
  - Aphagia [Recovered/Resolved]
  - Muscle spasms [Recovered/Resolved]
  - Nausea [Recovered/Resolved]
  - Vomiting [Recovered/Resolved]
